FAERS Safety Report 5217975-3 (Version None)
Quarter: 2007Q1

REPORT INFORMATION
  Report Type: 
  Country: None (occurrence: None)
  Receive Date: 20061130
  Receipt Date: 20060725
  Transmission Date: 20070707
  Serious: Yes (Hospitalization)
  Sender: FDA-Public Use
  Company Number: US200607000962

PATIENT
  Age: 42 Year
  Sex: Female
  Weight: 57.6 kg

DRUGS (2)
  1. ZYPREXA [Suspect]
     Indication: SCHIZOPHRENIA
     Dosage: 30 MG, UNK, UNK;  30 MG, EACH EAVENING, UNK
     Dates: end: 20060626
  2. ZYPREXA [Suspect]
     Indication: SCHIZOPHRENIA
     Dosage: 30 MG, UNK, UNK;  30 MG, EACH EAVENING, UNK
     Dates: start: 19980916

REACTIONS (3)
  - BLOOD GLUCOSE INCREASED [None]
  - DELUSION [None]
  - PRESCRIBED OVERDOSE [None]
